FAERS Safety Report 9456455 (Version 2)
Quarter: 2014Q3

REPORT INFORMATION
  Report Type: Spontaneous
  Country: US (occurrence: US)
  Receive Date: 20130813
  Receipt Date: 20140723
  Transmission Date: 20150326
  Serious: Yes (Other)
  Sender: FDA-Public Use
  Company Number: US-BRISTOL-MYERS SQUIBB COMPANY-19163799

PATIENT
  Age: 60 Year
  Sex: Female
  Weight: 88.43 kg

DRUGS (20)
  1. ENOXAPARIN SODIUM. [Suspect]
     Active Substance: ENOXAPARIN SODIUM
     Dosage: 1DF: 30/0.3ML
  2. FOLIC ACID. [Concomitant]
     Active Substance: FOLIC ACID
  3. PERCOCET [Concomitant]
     Active Substance: ACETAMINOPHEN\OXYCODONE HYDROCHLORIDE
     Dosage: 1DF: 2.5-325 UNITS NOS
  4. LASIX [Concomitant]
     Active Substance: FUROSEMIDE
  5. CLARITIN [Concomitant]
     Active Substance: LORATADINE
  6. TYLENOL [Concomitant]
     Active Substance: ACETAMINOPHEN
  7. POTASSIUM [Concomitant]
     Active Substance: POTASSIUM
  8. WARFARIN SODIUM. [Suspect]
     Active Substance: WARFARIN SODIUM
  9. SPIRIVA [Concomitant]
     Active Substance: TIOTROPIUM BROMIDE MONOHYDRATE
  10. ABATACEPT SUBQ INJECTION 125MG/ML [Suspect]
     Active Substance: ABATACEPT
     Route: 058
  11. ATACAND [Concomitant]
     Active Substance: CANDESARTAN CILEXETIL
  12. ACETYLSALICYLIC ACID [Concomitant]
     Active Substance: ASPIRIN
  13. CENESTIN [Concomitant]
     Active Substance: ESTROGENS, CONJUGATED SYNTHETIC A
  14. TRAMADOL HCL [Concomitant]
     Active Substance: TRAMADOL HYDROCHLORIDE
  15. VENTOLIN [Concomitant]
     Active Substance: ALBUTEROL SULFATE
  16. FLEXERIL [Concomitant]
     Active Substance: CYCLOBENZAPRINE HYDROCHLORIDE
  17. METHOTREXATE [Concomitant]
     Active Substance: METHOTREXATE
  18. SYMBICORT [Concomitant]
     Active Substance: BUDESONIDE\FORMOTEROL FUMARATE DIHYDRATE
     Dosage: 80+4.5 UNITS NOS
  19. NEXIUM [Concomitant]
     Active Substance: ESOMEPRAZOLE MAGNESIUM
  20. ALEVE [Concomitant]
     Active Substance: NAPROXEN SODIUM

REACTIONS (3)
  - Thrombosis [Unknown]
  - Fall [Unknown]
  - Limb injury [Unknown]
